FAERS Safety Report 20822342 (Version 2)
Quarter: 2022Q2

REPORT INFORMATION
  Report Type: Spontaneous
  Country: US (occurrence: None)
  Receive Date: 20220512
  Receipt Date: 20220603
  Transmission Date: 20220721
  Serious: Yes (Other)
  Sender: FDA-Public Use
  Company Number: 2022A183020

PATIENT
  Sex: Female

DRUGS (1)
  1. TEZSPIRE [Suspect]
     Active Substance: TEZEPELUMAB-EKKO
     Indication: Asthma
     Dosage: 210 MG 1.91 ML, EVERY FOUR WEEKS
     Route: 058
     Dates: start: 20220407

REACTIONS (2)
  - Oral candidiasis [Not Recovered/Not Resolved]
  - Restless legs syndrome [Recovered/Resolved]
